FAERS Safety Report 15733944 (Version 2)
Quarter: 2019Q1

REPORT INFORMATION
  Report Type: Spontaneous
  Country: US (occurrence: US)
  Receive Date: 20181218
  Receipt Date: 20190121
  Transmission Date: 20190417
  Serious: No
  Sender: FDA-Public Use
  Company Number: US-PFIZER INC-2018519724

PATIENT

DRUGS (6)
  1. TAXOTERE [Suspect]
     Active Substance: DOCETAXEL
     Dosage: UNK
     Dates: start: 2012
  2. DOCETAXEL. [Suspect]
     Active Substance: DOCETAXEL
     Dosage: UNK
     Dates: start: 2012
  3. DOCETAXEL ACCORD [Suspect]
     Active Substance: DOCETAXEL
     Dosage: UNK
     Dates: start: 2012
  4. DOCETAXEL SANDOZ [Suspect]
     Active Substance: DOCETAXEL
     Dosage: UNK
     Dates: start: 2012
  5. DOCETAXEL SUN [Suspect]
     Active Substance: DOCETAXEL
     Dosage: UNK
     Dates: start: 2012
  6. DOCETAXEL MCKESSON [Suspect]
     Active Substance: DOCETAXEL
     Dosage: UNK
     Dates: start: 2012

REACTIONS (6)
  - Alopecia [Unknown]
  - Anxiety [Unknown]
  - Discomfort [Unknown]
  - Pain [Unknown]
  - Impaired quality of life [Unknown]
  - Emotional distress [Unknown]
